FAERS Safety Report 7758983-8 (Version None)
Quarter: 2011Q3

REPORT INFORMATION
  Report Type: 
  Country: None (occurrence: None)
  Receive Date: 20110919
  Receipt Date: 20110914
  Transmission Date: 20111222
  Serious: Yes (Death, Disabling)
  Sender: FDA-Public Use
  Company Number: GB-SANOFI-AVENTIS-2011SA031889

PATIENT
  Age: 49 Year
  Sex: Female
  Weight: 69.4 kg

DRUGS (8)
  1. DOCETAXEL [Suspect]
     Route: 042
     Dates: start: 20101216, end: 20110211
  2. AVASTIN [Suspect]
     Route: 042
     Dates: start: 20110106, end: 20110211
  3. DOCETAXEL [Suspect]
     Indication: PALLIATIVE CARE
     Route: 042
     Dates: start: 20101216, end: 20110211
  4. AVASTIN [Suspect]
     Indication: PALLIATIVE CARE
     Route: 042
     Dates: start: 20110106, end: 20110211
  5. XELODA [Suspect]
     Indication: PALLIATIVE CARE
     Route: 048
     Dates: start: 20100317, end: 20110428
  6. LANSOPRAZOLE [Concomitant]
     Route: 048
     Dates: start: 20101001
  7. DEXAMETHASONE [Concomitant]
     Route: 048
     Dates: start: 20101216, end: 20110211
  8. XELODA [Suspect]
     Route: 048
     Dates: start: 20100317, end: 20110428

REACTIONS (3)
  - PALMAR-PLANTAR ERYTHRODYSAESTHESIA SYNDROME [None]
  - PIGMENTATION DISORDER [None]
  - DEATH [None]
